FAERS Safety Report 23193183 (Version 6)
Quarter: 2025Q1

REPORT INFORMATION
  Report Type: Other
  Country: US (occurrence: US)
  Receive Date: 20231116
  Receipt Date: 20250312
  Transmission Date: 20250408
  Serious: Yes (Other)
  Sender: TRAVERE THERAPEUTICS
  Company Number: US-TRAVERE-2023TVT00730

PATIENT
  Sex: Male

DRUGS (4)
  1. FILSPARI [Suspect]
     Active Substance: SPARSENTAN
     Indication: Chronic kidney disease
     Route: 048
     Dates: start: 20231029
  2. FILSPARI [Suspect]
     Active Substance: SPARSENTAN
     Indication: IgA nephropathy
     Route: 048
     Dates: start: 202310, end: 202502
  3. FILSPARI [Suspect]
     Active Substance: SPARSENTAN
     Indication: Proteinuria
  4. JARDIANCE [Concomitant]
     Active Substance: EMPAGLIFLOZIN

REACTIONS (9)
  - Renal impairment [Unknown]
  - Blood potassium increased [Unknown]
  - Hypotension [Unknown]
  - Peripheral swelling [Unknown]
  - Therapeutic product effect decreased [Unknown]
  - Asthenia [Unknown]
  - Laboratory test abnormal [Unknown]
  - Scar [Unknown]
  - Product use issue [Unknown]
